FAERS Safety Report 6239419-5 (Version None)
Quarter: 2009Q2

REPORT INFORMATION
  Report Type: 
  Country: None (occurrence: None)
  Receive Date: 20090622
  Receipt Date: 20090610
  Transmission Date: 20091009
  Serious: Yes (Hospitalization, Congenital Anomaly)
  Sender: FDA-Public Use
  Company Number: SE-ELI_LILLY_AND_COMPANY-SE200905005790

PATIENT

DRUGS (3)
  1. LISPRO [Suspect]
     Dosage: 20 IU, DAILY (1/D)
     Route: 064
     Dates: end: 20000420
  2. INSULATARD [Concomitant]
     Route: 064
  3. ACTRAPID                           /00646001/ [Concomitant]
     Route: 064

REACTIONS (2)
  - DRUG EXPOSURE DURING PREGNANCY [None]
  - VENTRICULAR SEPTAL DEFECT [None]
